FAERS Safety Report 12583586 (Version 1)
Quarter: 2016Q3

REPORT INFORMATION
  Report Type: Spontaneous
  Country: US (occurrence: US)
  Receive Date: 20160722
  Receipt Date: 20160722
  Transmission Date: 20161109
  Serious: No
  Sender: FDA-Public Use
  Company Number: US-GALDERMA-US16000183

PATIENT
  Sex: Female

DRUGS (2)
  1. ADAPALENE (ADAPALENE) GEL, 0.1% [Suspect]
     Active Substance: ADAPALENE
     Route: 061
     Dates: start: 2015
  2. ADAPALENE (ADAPALENE) GEL, 0.1% [Suspect]
     Active Substance: ADAPALENE
     Indication: ACNE
     Dosage: 0.1%
     Route: 061
     Dates: start: 2012

REACTIONS (1)
  - Drug ineffective [Recovered/Resolved]

NARRATIVE: CASE EVENT DATE: 2012
